FAERS Safety Report 6168214-0 (Version None)
Quarter: 2009Q2

REPORT INFORMATION
  Report Type: 
  Country: None (occurrence: None)
  Receive Date: 20090423
  Receipt Date: 20090423
  Transmission Date: 20091009
  Serious: Yes (Other)
  Sender: FDA-Public Use
  Company Number: None

PATIENT
  Age: 46 Year
  Sex: Male
  Weight: 104.3273 kg

DRUGS (2)
  1. AVELOX [Suspect]
     Indication: PNEUMONIA
     Dosage: 750MG ONCE A DAY PO
     Route: 048
     Dates: start: 20090123, end: 20090203
  2. LEVAQUIN [Suspect]
     Indication: PNEUMONIA
     Dosage: 400MG ONCE A DAY PO
     Route: 048
     Dates: start: 20090112, end: 20090123

REACTIONS (3)
  - INTERVERTEBRAL DISC DEGENERATION [None]
  - PLANTAR FASCIITIS [None]
  - TENDONITIS [None]
